FAERS Safety Report 22144183 (Version 3)
Quarter: 2023Q2

REPORT INFORMATION
  Report Type: Spontaneous
  Country: CA (occurrence: CA)
  Receive Date: 20230327
  Receipt Date: 20230510
  Transmission Date: 20230722
  Serious: Yes (Other)
  Sender: FDA-Public Use
  Company Number: CA-BEH-2023156740

PATIENT
  Age: 59 Year
  Sex: Female
  Weight: 128 kg

DRUGS (8)
  1. PRIVIGEN [Suspect]
     Active Substance: HUMAN IMMUNOGLOBULIN G
     Indication: Primary immunodeficiency syndrome
     Dosage: 5 GRAM, TOT
     Route: 065
     Dates: start: 20230301, end: 20230301
  2. PRIVIGEN [Suspect]
     Active Substance: HUMAN IMMUNOGLOBULIN G
     Dosage: 10 GRAM, TOT
     Route: 065
     Dates: start: 20230301, end: 20230301
  3. PRIVIGEN [Suspect]
     Active Substance: HUMAN IMMUNOGLOBULIN G
     Dosage: 20 GRAM, TOT
     Route: 065
     Dates: start: 20230301, end: 20230301
  4. PRIVIGEN [Suspect]
     Active Substance: HUMAN IMMUNOGLOBULIN G
     Dosage: UNK
     Route: 065
     Dates: start: 2014, end: 2016
  5. BENADRYL [Concomitant]
     Active Substance: DIPHENHYDRAMINE HYDROCHLORIDE
     Dosage: 50 MILLIGRAM
     Route: 042
     Dates: start: 20230301
  6. CETIRIZINE [Concomitant]
     Active Substance: CETIRIZINE HYDROCHLORIDE
     Dosage: 20 MILLIGRAM
     Route: 048
     Dates: start: 20230301
  7. CETIRIZINE [Concomitant]
     Active Substance: CETIRIZINE HYDROCHLORIDE
     Dosage: 20 MILLIGRAM
     Route: 048
     Dates: start: 20230301
  8. SOLU-CORTEF [Concomitant]
     Active Substance: HYDROCORTISONE SODIUM SUCCINATE
     Dosage: 150 MILLIGRAM
     Route: 042
     Dates: start: 20230301

REACTIONS (18)
  - Drug hypersensitivity [Recovered/Resolved]
  - Tachypnoea [Recovered/Resolved]
  - Dyspnoea [Recovered/Resolved]
  - Erythema [Recovered/Resolved]
  - Dysphonia [Recovered/Resolved]
  - Cough [Recovered/Resolved]
  - Hyperhidrosis [Recovered/Resolved]
  - Hot flush [Recovered/Resolved]
  - Flushing [Recovered/Resolved]
  - Dysphonia [Recovered/Resolved]
  - Throat tightness [Recovered/Resolved]
  - Hypersensitivity [Unknown]
  - Hypersensitivity [Unknown]
  - Hypersensitivity [Unknown]
  - Hypersensitivity [Unknown]
  - Hypersensitivity [Unknown]
  - Hypersensitivity [Unknown]
  - Hypersensitivity [Unknown]

NARRATIVE: CASE EVENT DATE: 20190412
